FAERS Safety Report 9221931 (Version 1)
Quarter: 2013Q2

REPORT INFORMATION
  Report Type: Spontaneous
  Country: US (occurrence: US)
  Receive Date: 20130410
  Receipt Date: 20130410
  Transmission Date: 20140414
  Serious: No
  Sender: FDA-Public Use
  Company Number: US-PFIZER INC-2013109247

PATIENT
  Age: 70 Year
  Sex: Female
  Weight: 63.49 kg

DRUGS (9)
  1. VFEND [Suspect]
     Indication: MENINGITIS FUNGAL
     Dosage: 400 MG, 2X/DAY
     Route: 048
  2. VFEND [Suspect]
     Dosage: 300 MG, 2X/DAY
     Route: 048
     Dates: end: 20130329
  3. CYMBALTA [Concomitant]
     Dosage: 30 MG, UNK
  4. LORTAB [Concomitant]
     Indication: PAIN
     Dosage: 10/500 MG,UNK
  5. PLAVIX [Concomitant]
     Dosage: UNK
  6. HYDROCHLOROTHIAZIDE [Concomitant]
     Dosage: UNK
  7. CARDIZEM [Concomitant]
     Indication: HYPERTENSION
     Dosage: UNK
  8. POTASSIUM [Concomitant]
     Dosage: UNK
  9. MAGNESIUM [Concomitant]
     Dosage: UNK

REACTIONS (4)
  - Fatigue [Recovered/Resolved]
  - Asthenia [Recovered/Resolved]
  - Nausea [Recovered/Resolved]
  - Constipation [Recovered/Resolved]
